FAERS Safety Report 4552829-7 (Version None)
Quarter: 2005Q1

REPORT INFORMATION
  Report Type: 
  Country: None (occurrence: None)
  Receive Date: 20050114
  Receipt Date: 20041217
  Transmission Date: 20050727
  Serious: Yes (Hospitalization)
  Sender: FDA-Public Use
  Company Number: DE-ROCHE-389555

PATIENT
  Age: 66 Year
  Sex: Female
  Weight: 102.3 kg

DRUGS (10)
  1. MYCOPHENOLATE MOFETIL [Suspect]
     Route: 048
     Dates: start: 20041119, end: 20041214
  2. CYCLOSPORINE [Suspect]
     Dosage: DOSE ADJUSTED AS PER TROUGH LEVEL.
     Route: 048
     Dates: start: 20041119
  3. METHYLPREDNISOLONE [Suspect]
     Route: 048
     Dates: start: 20041207
  4. CO-TRIMOXAZOL [Concomitant]
     Route: 048
     Dates: start: 20041119
  5. NYSTATIN [Concomitant]
     Route: 048
  6. FUROSEMIDE [Concomitant]
     Route: 048
     Dates: start: 20041210
  7. METOPROLOL [Concomitant]
     Route: 048
     Dates: start: 20041202
  8. LEVOFLOXACIN [Concomitant]
     Route: 048
     Dates: start: 20041207
  9. FLUCONAZOLE [Concomitant]
     Route: 048
     Dates: start: 20041205
  10. UNKNOWN DRUG [Concomitant]
     Dosage: DRUG NAME: HIRTAZOSIN.
     Route: 048
     Dates: start: 20041201

REACTIONS (2)
  - C-REACTIVE PROTEIN INCREASED [None]
  - WOUND DEHISCENCE [None]
